FAERS Safety Report 5628489-0 (Version None)
Quarter: 2008Q1

REPORT INFORMATION
  Report Type: 
  Country: None (occurrence: None)
  Receive Date: 20080215
  Receipt Date: 20080211
  Transmission Date: 20080703
  Serious: Yes (Other)
  Sender: FDA-Public Use
  Company Number: ES-ABBOTT-08P-144-0437633-00

PATIENT
  Age: 2 Year
  Sex: Male

DRUGS (5)
  1. SIMDAX [Suspect]
     Indication: CONGESTIVE CARDIOMYOPATHY
     Route: 042
     Dates: start: 20080207, end: 20080207
  2. SIMDAX [Suspect]
     Route: 042
     Dates: start: 20080207, end: 20080207
  3. SIMDAX [Suspect]
  4. DOPAMINA [Concomitant]
     Indication: DRUG USE FOR UNKNOWN INDICATION
  5. MILRINONA [Concomitant]
     Indication: DRUG USE FOR UNKNOWN INDICATION

REACTIONS (2)
  - OFF LABEL USE [None]
  - VENTRICULAR TACHYCARDIA [None]
